FAERS Safety Report 5625791-3 (Version None)
Quarter: 2008Q1

REPORT INFORMATION
  Report Type: 
  Country: None (occurrence: None)
  Receive Date: 20080213
  Receipt Date: 20080213
  Transmission Date: 20080703
  Serious: Yes (Life-Threatening, Hospitalization)
  Sender: FDA-Public Use
  Company Number: None

PATIENT
  Sex: Male
  Weight: 213.1906 kg

DRUGS (4)
  1. GLUCOVANCE [Suspect]
     Indication: ACCIDENTAL EXPOSURE
     Dosage: FOUR TABLETS ONCE PO
     Route: 048
     Dates: start: 20080130, end: 20080130
  2. ZOCOR [Concomitant]
  3. CLONIDINE [Concomitant]
  4. LORCET [Concomitant]

REACTIONS (3)
  - MEDICATION ERROR [None]
  - SOMNOLENCE [None]
  - WRONG DRUG ADMINISTERED [None]
